FAERS Safety Report 6828295 (Version 2)
Quarter: 2015Q4

REPORT INFORMATION
  Report Type: Spontaneous
  Country: GB (occurrence: GB)
  Receive Date: 20081201
  Receipt Date: 20151109
  Transmission Date: 20160305
  Serious: Yes (Hospitalization, Other)
  Sender: FDA-Public Use
  Company Number: GB-PFIZER INC-2008100573

PATIENT
  Age: 38 Year
  Sex: Female

DRUGS (1)
  1. CHAMPIX [Suspect]
     Active Substance: VARENICLINE TARTRATE
     Indication: SMOKING CESSATION THERAPY
     Dosage: UNK
     Route: 048

REACTIONS (13)
  - Cardiac arrest [Unknown]
  - Malaise [Recovering/Resolving]
  - Suicide attempt [Recovering/Resolving]
  - Condition aggravated [Recovering/Resolving]
  - Depression [Recovering/Resolving]
  - Vomiting [Recovering/Resolving]
  - Mood altered [Recovering/Resolving]
  - Hypoaesthesia [Unknown]
  - Brain injury [Unknown]
  - Thermal burn [Unknown]
  - Hypoaesthesia oral [Unknown]
  - Scar [Unknown]
  - Aggression [Recovering/Resolving]

NARRATIVE: CASE EVENT DATE: 20071017
